FAERS Safety Report 18220118 (Version 1)
Quarter: 2020Q3

REPORT INFORMATION
  Report Type: Spontaneous
  Country: FR (occurrence: FR)
  Receive Date: 20200902
  Receipt Date: 20200902
  Transmission Date: 20201103
  Serious: Yes (Hospitalization)
  Sender: FDA-Public Use
  Company Number: FR-CADILA HEALTHCARE LIMITED-FR-ZYDUS-021612

PATIENT

DRUGS (6)
  1. AUGMENTIN [Suspect]
     Active Substance: AMOXICILLIN\CLAVULANATE POTASSIUM
     Indication: INFECTION
     Route: 048
     Dates: start: 20171107, end: 20171113
  2. METFORMIN [Suspect]
     Active Substance: METFORMIN HYDROCHLORIDE
     Indication: TYPE 2 DIABETES MELLITUS
     Dosage: 1700 MILLIGRAM
     Route: 048
     Dates: end: 20171218
  3. BETADINE [Suspect]
     Active Substance: POVIDONE-IODINE
     Indication: PRODUCT USED FOR UNKNOWN INDICATION
     Dosage: 1 DOSAGE FORM,(INTERVAL :1 DAYS)
     Dates: start: 201711, end: 201711
  4. ABILIFY [Concomitant]
     Active Substance: ARIPIPRAZOLE
  5. SERESTA [Concomitant]
     Active Substance: OXAZEPAM
  6. DAKIN COOPER [Suspect]
     Active Substance: SODIUM HYPOCHLORITE
     Indication: PRODUCT USED FOR UNKNOWN INDICATION
     Dosage: 1 DOSAGE FORM,(INTERVAL :1 DAYS)
     Dates: start: 201711, end: 201711

REACTIONS (2)
  - Rash vesicular [Recovering/Resolving]
  - Pruritus [Recovering/Resolving]

NARRATIVE: CASE EVENT DATE: 201711
